FAERS Safety Report 25706954 (Version 5)
Quarter: 2025Q3

REPORT INFORMATION
  Report Type: Spontaneous
  Country: CO (occurrence: CO)
  Receive Date: 20250820
  Receipt Date: 20250911
  Transmission Date: 20251021
  Serious: Yes (Death, Life-Threatening, Hospitalization, Other)
  Sender: SANOFI AVENTIS
  Company Number: CO-MLMSERVICE-20250814-PI608654-00270-4

PATIENT
  Age: 35 Year
  Sex: Female
  Weight: 50 kg

DRUGS (8)
  1. PREDNISOLONE [Suspect]
     Active Substance: PREDNISOLONE
     Indication: Rheumatoid arthritis
     Dosage: 5 MG, QD
     Route: 048
     Dates: start: 2019, end: 20220126
  2. ARAVA [Suspect]
     Active Substance: LEFLUNOMIDE
     Indication: Rheumatoid arthritis
     Dosage: 20 MG, QD
     Route: 048
     Dates: start: 2019, end: 20220304
  3. RITUXIMAB [Suspect]
     Active Substance: RITUXIMAB
     Indication: Rheumatoid arthritis
     Dosage: 1000 MG, Q6M
     Route: 042
     Dates: end: 202106
  4. COLCHICINE [Concomitant]
     Active Substance: COLCHICINE
     Indication: Rheumatoid arthritis
     Dosage: 0.5 MG, BID
     Route: 048
  5. DEXAMETHASONE [Concomitant]
     Active Substance: DEXAMETHASONE
     Route: 042
  6. HYDROCORTISONE [Concomitant]
     Active Substance: HYDROCORTISONE
     Route: 042
  7. METHYLPREDNISOLONE [Concomitant]
     Active Substance: METHYLPREDNISOLONE
     Route: 042
  8. HYDROXYCHLOROQUINE [Concomitant]
     Active Substance: HYDROXYCHLOROQUINE
     Indication: Rheumatoid arthritis
     Dosage: 200 MG, QD
     Route: 048

REACTIONS (16)
  - Respiratory failure [Fatal]
  - Pleural effusion [Fatal]
  - Pulmonary septal thickening [Fatal]
  - Shock [Fatal]
  - Septic shock [Fatal]
  - Klebsiella infection [Fatal]
  - COVID-19 [Fatal]
  - Chest pain [Fatal]
  - Malaise [Fatal]
  - Hyperhidrosis [Fatal]
  - Musculoskeletal pain [Fatal]
  - General symptom [Fatal]
  - Headache [Fatal]
  - Dyspnoea [Fatal]
  - Pyrexia [Fatal]
  - Respiratory symptom [Fatal]

NARRATIVE: CASE EVENT DATE: 20220110
